FAERS Safety Report 12138289 (Version 1)
Quarter: 2016Q1

REPORT INFORMATION
  Report Type: Report from Study
  Country: US (occurrence: US)
  Receive Date: 20160302
  Receipt Date: 20160302
  Transmission Date: 20160526
  Serious: Yes (Other)
  Sender: FDA-Public Use
  Company Number: US-BAYER-2016-012895

PATIENT
  Age: 68 Year
  Sex: Female

DRUGS (2)
  1. STIVARGA [Suspect]
     Active Substance: REGORAFENIB
     Indication: COLORECTAL CANCER METASTATIC
     Dosage: 160 MG, QD
     Route: 048
     Dates: start: 20160118, end: 20160128
  2. STIVARGA [Suspect]
     Active Substance: REGORAFENIB
     Indication: COLORECTAL CANCER METASTATIC
     Dosage: 80 MG, QD
     Route: 048
     Dates: start: 20160129, end: 20160206

REACTIONS (17)
  - Gait disturbance [None]
  - Peripheral swelling [None]
  - Headache [None]
  - Abdominal pain [None]
  - Weight decreased [None]
  - Pain in extremity [None]
  - Rhinorrhoea [None]
  - Diarrhoea [None]
  - Epistaxis [None]
  - Decreased appetite [None]
  - Stoma site abscess [None]
  - Blister [None]
  - Erythema [None]
  - Blood pressure increased [None]
  - Dehydration [None]
  - Fatigue [None]
  - Asthenia [None]

NARRATIVE: CASE EVENT DATE: 20160118
